FAERS Safety Report 5128093-7 (Version None)
Quarter: 2006Q4

REPORT INFORMATION
  Report Type: 
  Country: None (occurrence: None)
  Receive Date: 20061004
  Receipt Date: 20060920
  Transmission Date: 20070319
  Serious: Yes (Hospitalization)
  Sender: FDA-Public Use
  Company Number: 2006BH013474

PATIENT
  Age: 83 Year
  Sex: Male
  Weight: 79.3 kg

DRUGS (27)
  1. IMMUNE GLOBULIN INTRAVENOUS (HUMAN) [Suspect]
     Indication: THROMBOCYTOPENIA
     Dosage: 20 GM; ONCE; IV
     Route: 042
     Dates: start: 20060917, end: 20060917
  2. ELECTROLYTE SOLUTIONS [Concomitant]
  3. CIPROBAY [Concomitant]
  4. ACETYLCYSTEINE [Concomitant]
  5. RED BLOOD CELLS [Concomitant]
  6. ACETAMINOPHEN [Concomitant]
  7. PANTOZOL [Concomitant]
  8. PREDNISOLONE [Concomitant]
  9. FAUSTAN [Concomitant]
  10. HALDOL [Concomitant]
  11. PROTHAZIN [Concomitant]
  12. PARACEFAN [Concomitant]
  13. INSUMAN RAPID [Concomitant]
  14. CALCIUM GLUCONATE [Concomitant]
  15. AMINO ACIDS NOS [Concomitant]
  16. VITAMINS NOS [Concomitant]
  17. ACTRAPID HUMAN [Concomitant]
  18. LACTULOSE [Concomitant]
  19. SUCRALFATE [Concomitant]
  20. KALINOR [Concomitant]
  21. CALCIUM GLUCONATE [Concomitant]
  22. PLATELETS [Concomitant]
  23. SEROQUEL [Concomitant]
  24. ACETYLCYSTEINE [Concomitant]
  25. PANTOZOL [Concomitant]
  26. OBSIDAN [Concomitant]
  27. TAVOR [Concomitant]

REACTIONS (8)
  - BLOOD PRESSURE INCREASED [None]
  - CHILLS [None]
  - HEART RATE INCREASED [None]
  - INFUSION RELATED REACTION [None]
  - POOR QUALITY DRUG ADMINISTERED [None]
  - PYREXIA [None]
  - THERAPEUTIC PRODUCT CONTAMINATION [None]
  - URINARY TRACT INFECTION [None]
